FAERS Safety Report 6731737-7 (Version None)
Quarter: 2010Q2

REPORT INFORMATION
  Report Type: 
  Country: None (occurrence: None)
  Receive Date: 20100519
  Receipt Date: 20100510
  Transmission Date: 20101027
  Serious: Yes (Other)
  Sender: FDA-Public Use
  Company Number: JP-PFIZER INC-2010059735

PATIENT
  Age: 75 Year
  Sex: Female

DRUGS (5)
  1. CADUET [Suspect]
     Indication: HYPERTENSION
     Dosage: UNK
     Route: 048
     Dates: start: 20100201
  2. CADUET [Suspect]
     Indication: HYPERLIPIDAEMIA
  3. ASPIRIN [Concomitant]
     Dosage: UNK
     Dates: start: 20000101
  4. HERBESSOR R [Concomitant]
     Dosage: UNK
     Dates: start: 20000101
  5. DIGOXIN [Concomitant]
     Dosage: UNK
     Dates: start: 20000101

REACTIONS (2)
  - STRESS [None]
  - VENOUS THROMBOSIS LIMB [None]
